FAERS Safety Report 10172734 (Version 2)
Quarter: 2014Q2

REPORT INFORMATION
  Report Type: Spontaneous
  Country: US (occurrence: None)
  Receive Date: 20140513
  Receipt Date: 20140523
  Transmission Date: 20141212
  Serious: Yes (Other)
  Sender: FDA-Public Use
  Company Number: FK201401709

PATIENT
  Age: 55 Year
  Sex: Male

DRUGS (2)
  1. ANASTROZOLE (ANASTROZOLE) [Suspect]
     Indication: OESTRADIOL INCREASED
     Dosage: 1 MG, 1 D
  2. ANDROGEL [Suspect]
     Indication: SEXUAL DYSFUNCTION
     Dosage: 50 MG, 1 D

REACTIONS (4)
  - Osteomyelitis [None]
  - Thrombosis [None]
  - Hypercoagulation [None]
  - Factor V Leiden mutation [None]
